FAERS Safety Report 9060114 (Version 1)
Quarter: 2013Q1

REPORT INFORMATION
  Report Type: Spontaneous
  Country: US (occurrence: US)
  Receive Date: 20130212
  Receipt Date: 20130212
  Transmission Date: 20140127
  Serious: Yes (Hospitalization)
  Sender: FDA-Public Use
  Company Number: US-BAYER-2013-017625

PATIENT
  Age: 39 Year
  Sex: 0

DRUGS (6)
  1. YASMIN [Suspect]
     Indication: MENSTRUATION IRREGULAR
  2. ELAVIL [Concomitant]
  3. VICOPROFEN [Concomitant]
     Indication: PAIN
  4. MULTIVITAMIN [Concomitant]
     Dosage: ONCE, DAILY
  5. IRON [Concomitant]
     Dosage: UNK UNK, ONCE, DAILY
  6. CELEBREX [Concomitant]

REACTIONS (1)
  - Pulmonary embolism [None]
